FAERS Safety Report 9992613 (Version 3)
Quarter: 2014Q1

REPORT INFORMATION
  Report Type: Spontaneous
  Country: US (occurrence: US)
  Receive Date: 20140310
  Receipt Date: 20140331
  Transmission Date: 20141002
  Serious: Yes (Other)
  Sender: FDA-Public Use
  Company Number: US-PFIZER INC-2014068360

PATIENT
  Age: 23 Year
  Sex: Male

DRUGS (7)
  1. EFFEXOR XR [Suspect]
     Indication: DEPRESSION
     Dosage: 75 MG, 2X/DAY
     Dates: start: 2003, end: 20050219
  2. EFFEXOR XR [Suspect]
     Dosage: 150 MG, 2X/DAY
     Dates: start: 2005, end: 2005
  3. EFFEXOR XR [Suspect]
     Dosage: 300 MG, 2X/DAY
     Dates: start: 2005, end: 2005
  4. EFFEXOR XR [Suspect]
     Dosage: UNK
     Dates: start: 2005, end: 20050519
  5. KLONOPIN [Suspect]
     Indication: ANXIETY
     Dosage: 0.5 MG, 2X/DAY
  6. KLONOPIN [Suspect]
     Dosage: 1 MG, AS NEEDED
  7. KLONOPIN [Suspect]
     Dosage: UNK

REACTIONS (1)
  - Convulsion [Unknown]
